FAERS Safety Report 6823965-7 (Version None)
Quarter: 2010Q3

REPORT INFORMATION
  Report Type: 
  Country: None (occurrence: None)
  Receive Date: 20100708
  Receipt Date: 20061024
  Transmission Date: 20110219
  Serious: No
  Sender: FDA-Public Use
  Company Number: US-PFIZER INC-2006109737

PATIENT
  Sex: Female
  Weight: 58.97 kg

DRUGS (8)
  1. CHANTIX [Suspect]
     Indication: SMOKING CESSATION THERAPY
     Dates: start: 20060101
  2. AVANDIA [Concomitant]
  3. PLAVIX [Concomitant]
  4. GLUCOPHAGE [Concomitant]
  5. TOPROL-XL [Concomitant]
  6. LISINOPRIL [Concomitant]
  7. PRILOSEC [Concomitant]
  8. ZOCOR [Concomitant]

REACTIONS (8)
  - ABNORMAL DREAMS [None]
  - DYSGEUSIA [None]
  - HYPERHIDROSIS [None]
  - NAUSEA [None]
  - PAIN IN EXTREMITY [None]
  - PALLOR [None]
  - SLEEP DISORDER [None]
  - VOMITING [None]
